FAERS Safety Report 6866486-8 (Version None)
Quarter: 2010Q3

REPORT INFORMATION
  Report Type: 
  Country: None (occurrence: None)
  Receive Date: 20100722
  Receipt Date: 20100713
  Transmission Date: 20110219
  Serious: Yes (Other)
  Sender: FDA-Public Use
  Company Number: PHHY2010BR46671

PATIENT
  Age: 64 Year
  Sex: Female
  Weight: 80 kg

DRUGS (9)
  1. FORASEQ [Suspect]
     Indication: ASTHMA
     Dosage: 1 DF, BID
  2. FORASEQ [Suspect]
     Dosage: 1 DF, BID
     Dates: start: 20100701
  3. DIOVAN HCT [Suspect]
  4. VYTORIN [Suspect]
  5. OMEPRAZOLE [Suspect]
  6. BI-PROFENID [Suspect]
  7. ATROVENT [Concomitant]
  8. BEROTEC [Concomitant]
  9. VULPURAN [Concomitant]

REACTIONS (8)
  - DEVICE MALFUNCTION [None]
  - DYSPNOEA [None]
  - LETHARGY [None]
  - LIMB PROSTHESIS USER [None]
  - MALAISE [None]
  - OSTEONECROSIS [None]
  - PNEUMONIA [None]
  - WRONG TECHNIQUE IN DRUG USAGE PROCESS [None]
